FAERS Safety Report 20848995 (Version 1)
Quarter: 2022Q2

REPORT INFORMATION
  Report Type: Spontaneous
  Country: IL (occurrence: IL)
  Receive Date: 20220519
  Receipt Date: 20220519
  Transmission Date: 20220720
  Serious: Yes (Hospitalization)
  Sender: FDA-Public Use
  Company Number: IL-AstraZeneca-2022A182848

PATIENT
  Age: 60 Year
  Sex: Male

DRUGS (1)
  1. TRASTUZUMAB DERUXTECAN [Suspect]
     Active Substance: TRASTUZUMAB DERUXTECAN
     Indication: HER2 mutant non-small cell lung cancer
     Dosage: WITH A LOW DOES OF 4.5 MG
     Route: 042

REACTIONS (3)
  - COVID-19 [Unknown]
  - Hepatic function abnormal [Unknown]
  - Off label use [Unknown]
